FAERS Safety Report 10039527 (Version 1)
Quarter: 2014Q1

REPORT INFORMATION
  Report Type: Report from Study
  Country: US (occurrence: US)
  Receive Date: 20140326
  Receipt Date: 20140326
  Transmission Date: 20141002
  Serious: Yes (Hospitalization)
  Sender: FDA-Public Use
  Company Number: US-TEVA-470235USA

PATIENT
  Age: 71 Year
  Sex: Male
  Weight: 79 kg

DRUGS (19)
  1. BENDAMUSTINE [Suspect]
     Indication: CHRONIC LYMPHOCYTIC LEUKAEMIA
     Dates: start: 20131029
  2. BENDAMUSTINE [Suspect]
     Indication: NON-HODGKIN^S LYMPHOMA
  3. RITUXIMAB [Suspect]
     Indication: CHRONIC LYMPHOCYTIC LEUKAEMIA
     Dates: start: 20131029
  4. RITUXIMAB [Suspect]
     Indication: NON-HODGKIN^S LYMPHOMA
  5. BLINDED STUDY DRUG [Suspect]
     Indication: CHRONIC LYMPHOCYTIC LEUKAEMIA
     Dates: start: 20131029
  6. BLINDED STUDY DRUG [Suspect]
     Indication: NON-HODGKIN^S LYMPHOMA
  7. CENTRUM SELECT 50+ [Concomitant]
  8. OXYBUTIN [Concomitant]
     Dates: start: 2003
  9. ZOPICLONE [Concomitant]
     Dates: start: 2006
  10. VITAMIN C [Concomitant]
     Dates: start: 1998
  11. VITAMIN D [Concomitant]
     Dates: start: 1998
  12. SENNA [Concomitant]
     Dates: start: 2006
  13. DOCUSATE SODIUM [Concomitant]
     Dates: start: 2006
  14. HYDROCORTISONE [Concomitant]
     Dates: start: 20131029
  15. ONDANSETRON [Concomitant]
     Dates: start: 20131029
  16. ACETAMINOPHEN [Concomitant]
     Dates: start: 20131029
  17. DIPHENHYDRAMINE [Concomitant]
     Dates: start: 20131029
  18. DEXAMETHASONE [Concomitant]
     Dates: start: 20131029
  19. AMOXICILLIN TRIHYDRATE/CLAVULANATE POTASSIUM [Concomitant]
     Dates: start: 20131207, end: 20131213

REACTIONS (3)
  - Hepatic enzyme increased [Not Recovered/Not Resolved]
  - Pneumonitis [Recovered/Resolved]
  - Oropharyngeal pain [Unknown]
